FAERS Safety Report 6285012-8 (Version None)
Quarter: 2009Q3

REPORT INFORMATION
  Report Type: 
  Country: None (occurrence: None)
  Receive Date: 20090727
  Receipt Date: 20090311
  Transmission Date: 20100115
  Serious: No
  Sender: FDA-Public Use
  Company Number: US-ABBOTT-09P-163-0562303-00

PATIENT
  Age: 54 Year
  Sex: Male

DRUGS (4)
  1. NORVIR [Suspect]
     Indication: HIV INFECTION
     Dates: start: 20071201
  2. KALETRA [Suspect]
     Indication: HIV INFECTION
     Dates: start: 20071201
  3. DARUNAVIR [Suspect]
     Indication: HIV INFECTION
     Route: 048
     Dates: start: 20071201, end: 20080101
  4. REYATAZ [Suspect]
     Indication: HIV INFECTION
     Dates: start: 20071201

REACTIONS (1)
  - NAUSEA [None]
